FAERS Safety Report 11806663 (Version 2)
Quarter: 2016Q1

REPORT INFORMATION
  Report Type: Spontaneous
  Country: US (occurrence: US)
  Receive Date: 20151207
  Receipt Date: 20160115
  Transmission Date: 20160525
  Serious: No
  Sender: FDA-Public Use
  Company Number: US-GLAXOSMITHKLINE-US2015GSK166483

PATIENT
  Sex: Female

DRUGS (1)
  1. VENTOLIN [Suspect]
     Active Substance: ALBUTEROL SULFATE
     Indication: ASTHMA
     Dosage: UNK
     Dates: start: 201506

REACTIONS (5)
  - Asthma [Unknown]
  - Intentional product use issue [Unknown]
  - Drug dose omission [Unknown]
  - Product quality issue [Unknown]
  - Emotional distress [Unknown]
